FAERS Safety Report 8620476-3 (Version None)
Quarter: 2012Q3

REPORT INFORMATION
  Report Type: 
  Country: None (occurrence: None)
  Receive Date: 20120824
  Receipt Date: 20120820
  Transmission Date: 20120928
  Serious: Yes (Death, Other)
  Sender: FDA-Public Use
  Company Number: AU-B.I. PHARMACEUTICALS,INC./RIDGEFIELD-2012-AU-01351AU

PATIENT
  Sex: Male
  Weight: 178 kg

DRUGS (4)
  1. RAMIPRIL [Concomitant]
     Dosage: 10 MG
     Dates: end: 20120606
  2. DIGOXIN [Concomitant]
     Dosage: 250 MCG
     Dates: end: 20120606
  3. FUROSEMIDE [Concomitant]
     Dosage: 40 MG
     Dates: end: 20120606
  4. PRADAXA [Suspect]
     Indication: ATRIAL FIBRILLATION
     Dosage: 300 MG
     Dates: start: 20110802, end: 20120606

REACTIONS (2)
  - MYOCARDIAL INFARCTION [None]
  - SYNCOPE [None]
